FAERS Safety Report 16853979 (Version 1)
Quarter: 2019Q4

REPORT INFORMATION
  Report Type: Spontaneous
  Country: US (occurrence: US)
  Receive Date: 20190926
  Receipt Date: 20190926
  Transmission Date: 20200122
  Serious: Yes (Other)
  Sender: FDA-Public Use
  Company Number: None

PATIENT
  Age: 45 Year
  Sex: Male
  Weight: 78.75 kg

DRUGS (2)
  1. NOVOLIN [Suspect]
     Active Substance: INSULIN HUMAN
  2. HUMULIN NOS [Suspect]
     Active Substance: INSULIN HUMAN

REACTIONS (3)
  - Gait disturbance [None]
  - Haematemesis [None]
  - Presyncope [None]

NARRATIVE: CASE EVENT DATE: 20190905
